FAERS Safety Report 8791857 (Version 2)
Quarter: 2012Q4

REPORT INFORMATION
  Report Type: 
  Country: US (occurrence: US)
  Receive Date: 20120918
  Receipt Date: 20121022
  Transmission Date: 20130627
  Serious: No
  Sender: FDA-Public Use
  Company Number: US-B.I. PHARMACEUTICALS,INC./RIDGEFIELD-2012-BP-22314BP

PATIENT
  Sex: Male

DRUGS (2)
  1. SPIRIVA [Suspect]
     Indication: CHRONIC OBSTRUCTIVE PULMONARY DISEASE
     Dosage: 18 mcg
     Route: 055
     Dates: start: 201207
  2. AMLODIPINE [Concomitant]
     Indication: HYPERTENSION
     Dosage: 125 mg
     Route: 048
     Dates: start: 2008

REACTIONS (4)
  - Palpitations [Unknown]
  - Dizziness [Unknown]
  - Product quality issue [Recovered/Resolved]
  - Visual acuity reduced [Not Recovered/Not Resolved]
